FAERS Safety Report 10281876 (Version 1)
Quarter: 2014Q3

REPORT INFORMATION
  Report Type: Spontaneous
  Country: US (occurrence: US)
  Receive Date: 20140707
  Receipt Date: 20140707
  Transmission Date: 20150326
  Serious: Yes (Other)
  Sender: FDA-Public Use
  Company Number: US-BAYER-2014-099933

PATIENT
  Age: 57 Year
  Sex: Female

DRUGS (1)
  1. MENOSTAR [Suspect]
     Active Substance: ESTRADIOL
     Indication: DEPRESSION
     Route: 062

REACTIONS (3)
  - Off label use [None]
  - Incorrect dose administered [None]
  - Ventricular extrasystoles [Recovered/Resolved]
